FAERS Safety Report 17578257 (Version 1)
Quarter: 2020Q1

REPORT INFORMATION
  Report Type: Spontaneous
  Country: JP (occurrence: JP)
  Receive Date: 20200324
  Receipt Date: 20200324
  Transmission Date: 20200409
  Serious: Yes (Hospitalization, Other)
  Sender: FDA-Public Use
  Company Number: JP-009507513-2002JPN000203J

PATIENT
  Age: 84 Year
  Sex: Female

DRUGS (1)
  1. KEYTRUDA [Suspect]
     Active Substance: PEMBROLIZUMAB
     Indication: NON-SMALL CELL LUNG CANCER
     Dosage: 200 MILLIGRAM, Q3W
     Route: 041
     Dates: start: 20200117

REACTIONS (5)
  - Pyrexia [Recovered/Resolved]
  - Pneumonia [Unknown]
  - Malignant neoplasm progression [Unknown]
  - Thrombophlebitis migrans [Unknown]
  - Somatic symptom disorder [Unknown]

NARRATIVE: CASE EVENT DATE: 202001
